FAERS Safety Report 5911671-2 (Version None)
Quarter: 2008Q4

REPORT INFORMATION
  Report Type: 
  Country: None (occurrence: None)
  Receive Date: 20081003
  Receipt Date: 20080930
  Transmission Date: 20090506
  Serious: Yes (Death, Life-Threatening, Hospitalization)
  Sender: FDA-Public Use
  Company Number: CLOF-1000282

PATIENT
  Age: 48 Year
  Sex: Male

DRUGS (4)
  1. CLOFARABINE (CLOFARABINE) SOLUTION FOR INFUSION [Suspect]
     Indication: ACUTE MYELOID LEUKAEMIA
     Dosage: 56 MG, QD, INTRAVENOUS
     Route: 042
     Dates: start: 20080806, end: 20080809
  2. BUSULFAN (BUSULFAN) [Suspect]
     Indication: ACUTE MYELOID LEUKAEMIA
     Dosage: 244 MG, QD, INTRAVENOUS; 368 MG, QD, INTRAVENOUS
     Route: 042
     Dates: start: 20080801, end: 20080801
  3. BUSULFAN (BUSULFAN) [Suspect]
     Indication: ACUTE MYELOID LEUKAEMIA
     Dosage: 244 MG, QD, INTRAVENOUS; 368 MG, QD, INTRAVENOUS
     Route: 042
     Dates: start: 20080801, end: 20080801
  4. FLUDARABINE PHOSPHATE [Suspect]
     Indication: ACUTE MYELOID LEUKAEMIA
     Dosage: 19 MG, QD, INTRAVENOUS
     Route: 042
     Dates: start: 20080806, end: 20080809

REACTIONS (12)
  - ACUTE GRAFT VERSUS HOST DISEASE IN LIVER [None]
  - AGITATION [None]
  - DIALYSIS [None]
  - MENTAL STATUS CHANGES [None]
  - MOUTH HAEMORRHAGE [None]
  - MUCOSAL INFLAMMATION [None]
  - MULTI-ORGAN FAILURE [None]
  - NO THERAPEUTIC RESPONSE [None]
  - OEDEMA MOUTH [None]
  - PHARYNGEAL OEDEMA [None]
  - RENAL FAILURE ACUTE [None]
  - SEPSIS [None]
